FAERS Safety Report 25258880 (Version 1)
Quarter: 2025Q2

REPORT INFORMATION
  Report Type: Report from Study
  Country: US (occurrence: US)
  Receive Date: 20250501
  Receipt Date: 20250501
  Transmission Date: 20250717
  Serious: No
  Sender: KINIKSA PHARMACEUTICALS
  Company Number: US-KINIKSA PHARMACEUTICALS LTD.-2025KPU000741

PATIENT
  Age: 67 Year
  Sex: Female

DRUGS (3)
  1. RILONACEPT [Suspect]
     Active Substance: RILONACEPT
     Indication: Pericarditis
     Dates: start: 202411
  2. RILONACEPT [Suspect]
     Active Substance: RILONACEPT
     Dates: start: 20241213
  3. RILONACEPT [Suspect]
     Active Substance: RILONACEPT
     Dosage: 160 MILLIGRAM, QW
     Route: 058
     Dates: end: 202504

REACTIONS (11)
  - Pericarditis [Unknown]
  - Pericardial effusion [Not Recovered/Not Resolved]
  - Dyspnoea [Recovering/Resolving]
  - Chest pain [Recovering/Resolving]
  - Alopecia [Unknown]
  - Oropharyngeal pain [Unknown]
  - Blood cholesterol increased [Unknown]
  - Joint injury [Not Recovered/Not Resolved]
  - Anxiety [Unknown]
  - Nasopharyngitis [Unknown]
  - Headache [Unknown]

NARRATIVE: CASE EVENT DATE: 20241201
